FAERS Safety Report 14194278 (Version 4)
Quarter: 2017Q4

REPORT INFORMATION
  Report Type: Spontaneous
  Country: US (occurrence: US)
  Receive Date: 20171116
  Receipt Date: 20171227
  Transmission Date: 20180321
  Serious: No
  Sender: FDA-Public Use
  Company Number: US-PFIZER INC-2017490867

PATIENT
  Age: 74 Year
  Sex: Male
  Weight: 74 kg

DRUGS (2)
  1. MEDROL [Suspect]
     Active Substance: METHYLPREDNISOLONE
     Indication: PAIN
  2. MEDROL [Suspect]
     Active Substance: METHYLPREDNISOLONE
     Indication: INJURY
     Dosage: UNK
     Dates: start: 20171029, end: 20171103

REACTIONS (1)
  - Drug effect incomplete [Unknown]
